FAERS Safety Report 4489203-8 (Version None)
Quarter: 2004Q4

REPORT INFORMATION
  Report Type: 
  Country: None (occurrence: None)
  Receive Date: 20041029
  Receipt Date: 20041021
  Transmission Date: 20050328
  Serious: Yes (Other)
  Sender: FDA-Public Use
  Company Number: US-JNJFOC-20041006828

PATIENT
  Sex: Female
  Weight: 54.43 kg

DRUGS (1)
  1. ORTHO EVRA [Suspect]
     Indication: CONTRACEPTION
     Route: 062
     Dates: start: 20041017, end: 20041018

REACTIONS (4)
  - ASTHMA [None]
  - LOSS OF CONSCIOUSNESS [None]
  - RASH ERYTHEMATOUS [None]
  - URTICARIA [None]
